FAERS Safety Report 5735438-3 (Version None)
Quarter: 2008Q2

REPORT INFORMATION
  Report Type: 
  Country: None (occurrence: None)
  Receive Date: 20080512
  Receipt Date: 20080428
  Transmission Date: 20081010
  Serious: Yes (Other)
  Sender: FDA-Public Use
  Company Number: GB-ROCHE-542968

PATIENT
  Sex: Female
  Weight: 96.2 kg

DRUGS (15)
  1. ORLISTAT [Suspect]
     Indication: OBESITY
     Route: 048
     Dates: start: 20070808, end: 20071203
  2. CALCICHEW D3 [Concomitant]
     Dosage: DRUG REPORTED: CALICHEW
     Route: 048
     Dates: start: 20040101
  3. CALCICHEW D3 [Concomitant]
     Dosage: DRUG REPORTED: CALICHEW
     Route: 048
     Dates: start: 20040101
  4. LANSOPRAZOLE [Concomitant]
     Indication: GASTRIC ULCER
     Route: 048
     Dates: start: 19880101
  5. VITAMIN B [Concomitant]
     Route: 048
  6. SPIRONOLACTONE [Concomitant]
     Route: 048
  7. METFORMIN HCL [Concomitant]
     Route: 048
  8. CITALOPRAM [Concomitant]
     Indication: DEPRESSION
     Route: 048
  9. FERROUS SULFATE TAB [Concomitant]
     Indication: ANAEMIA
     Route: 048
  10. LANTUS [Concomitant]
     Route: 065
  11. CODEINE SUL TAB [Concomitant]
     Route: 065
  12. THIAMINE [Concomitant]
     Route: 065
  13. LACTULOSE [Concomitant]
     Route: 065
  14. FRESENIUS ENERGAN [Concomitant]
     Dosage: DRUG REPORTED AS FRESNIUS
     Route: 065
  15. FOLIC ACID [Concomitant]
     Route: 065

REACTIONS (2)
  - BREAST MASS [None]
  - NEOPLASM MALIGNANT [None]
